FAERS Safety Report 5258145-2 (Version None)
Quarter: 2007Q1

REPORT INFORMATION
  Report Type: 
  Country: None (occurrence: None)
  Receive Date: 20070307
  Receipt Date: 20070306
  Transmission Date: 20070707
  Serious: Yes (Other)
  Sender: FDA-Public Use
  Company Number: US-ROXANE LABORATORIES, INC-2007-DE-01356GD

PATIENT
  Age: 67 Year
  Sex: Male

DRUGS (11)
  1. HYDROCHLOROTHIAZIDE [Suspect]
     Indication: HYPERTENSION
  2. ATORVASTATIN [Suspect]
     Indication: DYSLIPIDAEMIA
  3. EZETIMIBE [Suspect]
     Indication: DYSLIPIDAEMIA
  4. ATENOLOL [Concomitant]
  5. LISINOPRIL [Concomitant]
  6. ROSIGLITAZONE [Concomitant]
  7. POTASSIUM CHLORIDE [Concomitant]
     Dosage: 20 MEQ
  8. PRIMIDONE [Concomitant]
  9. CYANOCOBALAMIN [Concomitant]
  10. NPH INSULIN [Concomitant]
     Indication: DIABETES MELLITUS NON-INSULIN-DEPENDENT
     Dosage: 55 U IN THE MORNING AND 10 U AT BEDTIME
  11. INSULIN [Concomitant]
     Indication: DIABETES MELLITUS NON-INSULIN-DEPENDENT
     Dosage: 5 U AT BREAKFAST AND AT EVENING MEAL

REACTIONS (1)
  - MYOPATHY [None]
